FAERS Safety Report 16473296 (Version 1)
Quarter: 2019Q2

REPORT INFORMATION
  Report Type: Spontaneous
  Country: US (occurrence: US)
  Receive Date: 20190625
  Receipt Date: 20190625
  Transmission Date: 20190711
  Serious: Yes (Death)
  Sender: FDA-Public Use
  Company Number: US-ENDO PHARMACEUTICALS INC-2019-105600

PATIENT
  Age: 72 Year
  Sex: Male

DRUGS (1)
  1. VANTAS [Suspect]
     Active Substance: HISTRELIN ACETATE
     Indication: PROSTATE CANCER
     Dosage: UNK UNKNOWN, UNKNOWN
     Route: 058
     Dates: start: 20160812

REACTIONS (1)
  - Death [Fatal]

NARRATIVE: CASE EVENT DATE: 20190511
